FAERS Safety Report 6674927-4 (Version None)
Quarter: 2010Q2

REPORT INFORMATION
  Report Type: 
  Country: None (occurrence: None)
  Receive Date: 20100409
  Receipt Date: 20100331
  Transmission Date: 20101027
  Serious: Yes (Other)
  Sender: FDA-Public Use
  Company Number: CA-JNJFOC-20100401113

PATIENT
  Sex: Male
  Weight: 80 kg

DRUGS (17)
  1. REMICADE [Suspect]
     Indication: CROHN'S DISEASE
     Route: 042
  2. REMICADE [Suspect]
     Indication: RHEUMATOID ARTHRITIS
     Route: 042
  3. SALOFALK [Concomitant]
     Route: 048
  4. SULFASALAZINE [Concomitant]
     Route: 048
  5. FOLIC ACID [Concomitant]
     Route: 048
  6. SYNTHROID [Concomitant]
  7. SYMBICORT [Concomitant]
     Route: 055
  8. METHOTREXATE [Concomitant]
     Route: 048
  9. AMITRIPTYLINE HCL [Concomitant]
     Route: 048
  10. COLCHICINE [Concomitant]
     Route: 048
  11. VITAMIN D [Concomitant]
     Route: 048
  12. CALCIUM CITRATE [Concomitant]
     Route: 048
  13. OXAZEPAM [Concomitant]
     Route: 048
  14. GABAPENTIN [Concomitant]
     Route: 048
  15. VITAMIN B-12 [Concomitant]
     Route: 048
  16. VITAMIN B-12 [Concomitant]
     Route: 030
  17. VOLTAREN [Concomitant]

REACTIONS (1)
  - GASTRIC CANCER [None]
